FAERS Safety Report 24048136 (Version 2)
Quarter: 2024Q3

REPORT INFORMATION
  Report Type: Spontaneous
  Country: JP (occurrence: JP)
  Receive Date: 20240703
  Receipt Date: 20240725
  Transmission Date: 20241017
  Serious: Yes (Other)
  Sender: SANOFI AVENTIS
  Company Number: JP-SAKK-2024SA192289AA

PATIENT
  Age: 50 Year
  Sex: Female

DRUGS (3)
  1. DUPIXENT [Suspect]
     Active Substance: DUPILUMAB
     Indication: Chronic eosinophilic rhinosinusitis
     Dosage: DAILY DOSE: 300 MG
     Route: 058
     Dates: start: 202401, end: 202406
  2. DUPIXENT [Suspect]
     Active Substance: DUPILUMAB
     Indication: Otitis media
  3. PREDNISOLONE ACETATE [Concomitant]
     Active Substance: PREDNISOLONE ACETATE
     Indication: Eosinophilic otitis media
     Dosage: UNK
     Route: 065

REACTIONS (3)
  - Eosinophilic pneumonia [Unknown]
  - Off label use [Unknown]
  - Drug effective for unapproved indication [Unknown]

NARRATIVE: CASE EVENT DATE: 20240101
